FAERS Safety Report 10503920 (Version 1)
Quarter: 2014Q4

REPORT INFORMATION
  Report Type: Spontaneous
  Country: US (occurrence: None)
  Receive Date: 20141007
  Receipt Date: 20141007
  Transmission Date: 20150528
  Serious: No
  Sender: FDA-Public Use
  Company Number: None

PATIENT
  Age: 62 Year
  Sex: Female
  Weight: 45.36 kg

DRUGS (1)
  1. VALACYCLOVIR [Suspect]
     Active Substance: VALACYCLOVIR HYDROCHLORIDE
     Indication: ANTIVIRAL PROPHYLAXIS
     Dosage: 1 PILL
     Route: 048

REACTIONS (5)
  - Gastrointestinal disorder [None]
  - Pain [None]
  - Myalgia [None]
  - Muscle spasms [None]
  - Abdominal distension [None]

NARRATIVE: CASE EVENT DATE: 20141001
